FAERS Safety Report 23293867 (Version 1)
Quarter: 2023Q4

REPORT INFORMATION
  Report Type: Spontaneous
  Country: US (occurrence: US)
  Receive Date: 20231213
  Receipt Date: 20231213
  Transmission Date: 20240110
  Serious: Yes (Hospitalization)
  Sender: FDA-Public Use
  Company Number: US-GENERICUS, INC.-2023GNR00003

PATIENT
  Sex: Male

DRUGS (1)
  1. TOBRAMYCIN [Suspect]
     Active Substance: TOBRAMYCIN
     Indication: Lung disorder
     Dosage: 300 MG/5 ML, 2X/DAY
     Dates: start: 2017

REACTIONS (6)
  - Pneumonia [Unknown]
  - Cystitis [Unknown]
  - Gastrointestinal inflammation [Unknown]
  - Functional gastrointestinal disorder [Unknown]
  - Cardiac arrest [Unknown]
  - Off label use [Not Recovered/Not Resolved]

NARRATIVE: CASE EVENT DATE: 20170101
